FAERS Safety Report 9555777 (Version 1)
Quarter: 2013Q3

REPORT INFORMATION
  Report Type: Report from Study
  Country: EG (occurrence: EG)
  Receive Date: 20130926
  Receipt Date: 20130926
  Transmission Date: 20140515
  Serious: Yes (Hospitalization)
  Sender: FDA-Public Use
  Company Number: EG-SANOFI-AVENTIS-2013SA094531

PATIENT
  Age: 62 Year
  Sex: Male

DRUGS (1)
  1. LANTUS [Suspect]
     Indication: TYPE 2 DIABETES MELLITUS
     Route: 058
     Dates: start: 20121017, end: 20130516

REACTIONS (1)
  - Paralysis [Not Recovered/Not Resolved]
